FAERS Safety Report 17614861 (Version 2)
Quarter: 2020Q2

REPORT INFORMATION
  Report Type: Spontaneous
  Country: IT (occurrence: IT)
  Receive Date: 20200402
  Receipt Date: 20200430
  Transmission Date: 20200713
  Serious: Yes (Life-Threatening, Hospitalization, Other)
  Sender: FDA-Public Use
  Company Number: IT-HIKMA PHARMACEUTICALS USA INC.-IT-H14001-20-01514

PATIENT
  Age: 5 Year
  Sex: Female

DRUGS (10)
  1. MELPHALAN. [Suspect]
     Active Substance: MELPHALAN
     Indication: PRODUCT USED FOR UNKNOWN INDICATION
     Route: 065
     Dates: start: 201603
  2. IRINOTECAN [Suspect]
     Active Substance: IRINOTECAN
     Indication: NEUROBLASTOMA
     Route: 065
     Dates: start: 201607, end: 201801
  3. TEMOZOLAMIDE [Suspect]
     Active Substance: TEMOZOLOMIDE
     Indication: NEUROBLASTOMA
     Route: 065
     Dates: start: 201607, end: 201801
  4. ETOPOSIDE. [Suspect]
     Active Substance: ETOPOSIDE
     Indication: NEUROBLASTOMA
     Route: 065
     Dates: start: 201507, end: 201603
  5. DINUTUXIMAB [Suspect]
     Active Substance: DINUTUXIMAB
     Indication: PRODUCT USED FOR UNKNOWN INDICATION
     Route: 065
  6. CYCLOPHOSPHAMIDE. [Suspect]
     Active Substance: CYCLOPHOSPHAMIDE
     Indication: NEUROBLASTOMA
     Route: 065
     Dates: start: 201507, end: 201603
  7. CISPLATIN. [Suspect]
     Active Substance: CISPLATIN
     Indication: NEUROBLASTOMA
     Route: 065
     Dates: start: 201507, end: 201603
  8. BUSULFAN. [Suspect]
     Active Substance: BUSULFAN
     Indication: PRODUCT USED FOR UNKNOWN INDICATION
     Route: 065
     Dates: start: 201603
  9. VINCRISTINE [Suspect]
     Active Substance: VINCRISTINE
     Indication: NEUROBLASTOMA
     Route: 065
     Dates: start: 201507, end: 201603
  10. CARBOPLATIN. [Suspect]
     Active Substance: CARBOPLATIN
     Indication: NEUROBLASTOMA
     Route: 065
     Dates: start: 201507, end: 201603

REACTIONS (9)
  - Fungaemia [Unknown]
  - Staphylococcal infection [Recovered/Resolved]
  - Bone marrow toxicity [Unknown]
  - Thrombocytopenia [Unknown]
  - Respiratory tract infection fungal [Not Recovered/Not Resolved]
  - Immunodeficiency [Unknown]
  - Transmission of an infectious agent via product [Unknown]
  - Fungal infection [Unknown]
  - Anaemia [Unknown]

NARRATIVE: CASE EVENT DATE: 201803
